FAERS Safety Report 8605593-6 (Version None)
Quarter: 2012Q3

REPORT INFORMATION
  Report Type: 
  Country: None (occurrence: None)
  Receive Date: 20120807
  Receipt Date: 20120723
  Transmission Date: 20120928
  Serious: Yes (Other)
  Sender: FDA-Public Use
  Company Number: 2012MA009257

PATIENT
  Age: 74 Year
  Sex: Female

DRUGS (3)
  1. RANITIDINE [Suspect]
     Indication: DYSPEPSIA
     Dosage: 150 MG;PO
     Route: 048
     Dates: start: 20120604, end: 20120615
  2. LEVOTHYROXINE SODIUM [Concomitant]
  3. OMEPRAZOLE [Concomitant]

REACTIONS (9)
  - CHILLS [None]
  - INFLUENZA LIKE ILLNESS [None]
  - RASH GENERALISED [None]
  - SKIN DISCOLOURATION [None]
  - FACE OEDEMA [None]
  - SKIN EXFOLIATION [None]
  - RASH ERYTHEMATOUS [None]
  - OEDEMA PERIPHERAL [None]
  - VIRAL INFECTION [None]
